FAERS Safety Report 15337346 (Version 1)
Quarter: 2018Q3

REPORT INFORMATION
  Report Type: Spontaneous
  Country: US (occurrence: US)
  Receive Date: 20180827
  Receipt Date: 20180827
  Transmission Date: 20181010
  Serious: Yes (Hospitalization)
  Sender: FDA-Public Use
  Company Number: None

PATIENT
  Age: 58 Year
  Sex: Female
  Weight: 130 kg

DRUGS (2)
  1. NITROFURANTOIN 100MG [Suspect]
     Active Substance: NITROFURANTOIN
     Indication: URINARY TRACT INFECTION
     Route: 048
     Dates: start: 20180806
  2. ROCEPHIN [Concomitant]
     Active Substance: CEFTRIAXONE SODIUM

REACTIONS (5)
  - Tremor [None]
  - Hallucination [None]
  - White blood cell count increased [None]
  - Hepatic enzyme increased [None]
  - Pyrexia [None]

NARRATIVE: CASE EVENT DATE: 20180810
